FAERS Safety Report 7911411-1 (Version None)
Quarter: 2011Q4

REPORT INFORMATION
  Report Type: 
  Country: None (occurrence: None)
  Receive Date: 20111109
  Receipt Date: 20111101
  Transmission Date: 20120403
  Serious: Yes (Hospitalization, Other)
  Sender: FDA-Public Use
  Company Number: DKLU1074373

PATIENT
  Age: 8 Month
  Sex: Female

DRUGS (3)
  1. SABRIL [Suspect]
     Indication: INFANTILE SPASMS
     Dosage: 500 MG MILLIGRAM(S), 2 IN 1 D, ORAL ; 750 MG MILLIGRAM(S), 2 IN 1 D, ORAL
     Route: 048
     Dates: start: 20111019
  2. PHENOBARBITAL TAB [Concomitant]
  3. KEPPRA [Concomitant]

REACTIONS (5)
  - FATIGUE [None]
  - DECREASED APPETITE [None]
  - CONVULSION [None]
  - LETHARGY [None]
  - DEHYDRATION [None]
